FAERS Safety Report 5602217-7 (Version None)
Quarter: 2008Q1

REPORT INFORMATION
  Report Type: 
  Country: None (occurrence: None)
  Receive Date: 20080125
  Receipt Date: 20080115
  Transmission Date: 20080703
  Serious: Yes (Other)
  Sender: FDA-Public Use
  Company Number: US-ASTRAZENECA-2006UW11743

PATIENT
  Age: 10744 Day
  Sex: Female
  Weight: 102.3 kg

DRUGS (7)
  1. SEROQUEL [Suspect]
     Indication: BIPOLAR DISORDER
     Route: 048
     Dates: start: 20010701, end: 20020101
  2. SEROQUEL [Suspect]
     Indication: DEPRESSION
     Route: 048
     Dates: start: 20010701, end: 20020101
  3. ZYPREXA [Suspect]
  4. ABILIFY [Concomitant]
     Dosage: 5-20 MG
     Dates: start: 20030101
  5. NAVANE [Concomitant]
     Dates: start: 20020501, end: 20020501
  6. RISPERDAL [Concomitant]
     Dosage: ONE DAY
     Dates: start: 20010101
  7. ZYPREXA [Concomitant]
     Dates: start: 20010601, end: 20010701

REACTIONS (5)
  - DIABETES MELLITUS [None]
  - DIARRHOEA [None]
  - GALLBLADDER OPERATION [None]
  - ILL-DEFINED DISORDER [None]
  - THYROID OPERATION [None]
